FAERS Safety Report 8139650-8 (Version None)
Quarter: 2012Q1

REPORT INFORMATION
  Report Type: 
  Country: None (occurrence: None)
  Receive Date: 20120215
  Receipt Date: 20120210
  Transmission Date: 20120608
  Serious: Yes (Death)
  Sender: FDA-Public Use
  Company Number: JP-PFIZER INC-2011211375

PATIENT
  Age: 98 Year
  Sex: Female

DRUGS (23)
  1. VFEND [Suspect]
     Indication: PULMONARY MYCOSIS
     Dosage: 200 MG, 2X/DAY
     Route: 041
     Dates: start: 20110904, end: 20110904
  2. VFEND [Suspect]
     Dosage: 200 MG, 1X/DAY
     Route: 041
     Dates: start: 20110905, end: 20110908
  3. AMBISOME [Suspect]
     Dosage: 100 MG, 1X/DAY
     Route: 041
     Dates: start: 20110903, end: 20110909
  4. TEICOPLANIN [Concomitant]
     Indication: LOBAR PNEUMONIA
     Dosage: 400 MG, 2X/DAY
     Route: 041
     Dates: start: 20110831, end: 20110831
  5. TEICOPLANIN [Concomitant]
     Dosage: 400 MG, 1X/DAY
     Route: 041
     Dates: start: 20110907, end: 20110908
  6. HANP [Concomitant]
     Indication: CARDIAC FAILURE
     Dosage: 1000 UG, 1X/DAY
     Route: 041
     Dates: start: 20110830, end: 20110904
  7. BUPRENORPHINE HCL [Concomitant]
     Indication: ANALGESIC THERAPY
     Dosage: UNK MG, 1X/DAY
     Route: 041
     Dates: start: 20110904, end: 20110910
  8. MICAFUNGIN SODIUM [Concomitant]
     Indication: PULMONARY MYCOSIS
     Dosage: 100 MG, 1X/DAY
     Route: 041
     Dates: start: 20110827, end: 20110902
  9. MIRACLID [Concomitant]
     Indication: SHOCK
     Dosage: 0.3 MILLION UNITS, 1X/DAY
     Route: 041
     Dates: start: 20110903, end: 20110909
  10. MINOCYCLINE HCL [Suspect]
     Dosage: 100 MG, 2X/DAY
     Route: 041
     Dates: start: 20110905, end: 20110906
  11. HALOPERIDOL [Concomitant]
     Indication: ANALGESIC THERAPY
     Dosage: 1.43 MG, 1X/DAY
     Route: 041
     Dates: start: 20110904, end: 20110910
  12. MEROPENEM [Suspect]
     Indication: LOBAR PNEUMONIA
     Dosage: 0.5 G, 2X/DAY
     Route: 041
     Dates: start: 20110826, end: 20110830
  13. FRAGMIN [Concomitant]
     Indication: DISSEMINATED INTRAVASCULAR COAGULATION
     Dosage: 2500 IU, 1X/DAY
     Route: 041
     Dates: start: 20110831, end: 20110912
  14. TEICOPLANIN [Concomitant]
     Dosage: 400 MG, 2X/DAY
     Route: 041
     Dates: start: 20110906, end: 20110906
  15. TEICOPLANIN [Concomitant]
     Dosage: 400 MG, 1X/DAY
     Route: 041
     Dates: start: 20110901, end: 20110901
  16. OMEPRAZOLE [Concomitant]
     Indication: GASTRIC ULCER
     Dosage: 20 MG, 1X/DAY
     Route: 041
     Dates: start: 20110831, end: 20110912
  17. CIPROFLOXACIN [Concomitant]
     Indication: LOBAR PNEUMONIA
     Dosage: 300 MG, 2X/DAY
     Route: 041
     Dates: start: 20110831, end: 20110903
  18. PRODIF [Concomitant]
     Indication: PULMONARY MYCOSIS
     Dosage: 800 MG, 1X/DAY
     Route: 041
     Dates: start: 20110903, end: 20110903
  19. MEROPENEM [Suspect]
     Dosage: 0.5 G, 2X/DAY
     Route: 041
     Dates: start: 20110904, end: 20110908
  20. MINOCYCLINE HCL [Suspect]
     Dosage: 200 MG, 1X/DAY
     Route: 041
     Dates: start: 20110904, end: 20110904
  21. AMBISOME [Suspect]
     Indication: PULMONARY MYCOSIS
     Dosage: 200 MG, 1X/DAY
     Route: 041
     Dates: start: 20110902, end: 20110902
  22. MINOCYCLINE HCL [Suspect]
     Indication: LOBAR PNEUMONIA
     Dosage: 100 MG, 1X/DAY
     Route: 041
     Dates: start: 20110826, end: 20110830
  23. ELASPOL [Concomitant]
     Indication: ACUTE RESPIRATORY DISTRESS SYNDROME
     Dosage: 200 MG, 1X/DAY
     Route: 041
     Dates: start: 20110904, end: 20110909

REACTIONS (3)
  - HYPERAMMONAEMIA [None]
  - PULMONARY MYCOSIS [None]
  - HEPATIC FUNCTION ABNORMAL [None]
